FAERS Safety Report 23396047 (Version 1)
Quarter: 2024Q1

REPORT INFORMATION
  Report Type: Other
  Country: CZ (occurrence: CZ)
  Receive Date: 20240112
  Receipt Date: 20240112
  Transmission Date: 20240410
  Serious: Yes (Hospitalization)
  Sender: FDA-Public Use
  Company Number: None

PATIENT
  Age: 17 Year
  Sex: Female

DRUGS (3)
  1. IBUPROFEN [Suspect]
     Active Substance: IBUPROFEN
     Indication: Product used for unknown indication
     Dosage: UNK
     Route: 048
     Dates: start: 20211217, end: 20211217
  2. MEPHENOXALONE [Suspect]
     Active Substance: MEPHENOXALONE
     Indication: Product used for unknown indication
     Dosage: UNK
     Route: 048
     Dates: start: 20211217, end: 20211217
  3. ACETAMINOPHEN [Suspect]
     Active Substance: ACETAMINOPHEN
     Indication: Product used for unknown indication
     Dosage: 169 MG/KG, TOTAL DOSE OF 24 TABLETS
     Route: 048
     Dates: start: 20211217, end: 20211217

REACTIONS (2)
  - Suicide attempt [Unknown]
  - Intentional overdose [Unknown]

NARRATIVE: CASE EVENT DATE: 20211217
